FAERS Safety Report 6833873-3 (Version None)
Quarter: 2010Q3

REPORT INFORMATION
  Report Type: 
  Country: None (occurrence: None)
  Receive Date: 20100712
  Receipt Date: 20070618
  Transmission Date: 20110219
  Serious: No
  Sender: FDA-Public Use
  Company Number: US-PFIZER INC-2007027984

PATIENT
  Sex: Female
  Weight: 81.65 kg

DRUGS (4)
  1. CHANTIX [Suspect]
     Indication: SMOKING CESSATION THERAPY
     Dates: start: 20070301, end: 20070301
  2. MULTI-VITAMINS [Concomitant]
  3. CALCIUM [Concomitant]
  4. ALPRAZOLAM [Concomitant]
     Indication: NERVOUSNESS
     Dates: start: 20070301

REACTIONS (5)
  - ABNORMAL DREAMS [None]
  - FATIGUE [None]
  - HEART RATE INCREASED [None]
  - MIDDLE INSOMNIA [None]
  - TREMOR [None]
